FAERS Safety Report 13307206 (Version 3)
Quarter: 2017Q1

REPORT INFORMATION
  Report Type: Report from Study
  Country: None (occurrence: NL)
  Receive Date: 20170308
  Receipt Date: 20170320
  Transmission Date: 20170428
  Serious: Yes (Hospitalization)
  Sender: FDA-Public Use
  Company Number: NL-ABBVIE-17P-114-1894509-00

PATIENT
  Age: 50 Year
  Sex: Female
  Weight: 103 kg

DRUGS (25)
  1. ATORVASTATIN [Concomitant]
     Active Substance: ATORVASTATIN
     Indication: HYPERCHOLESTEROLAEMIA
     Dates: start: 20090620
  2. PREDNISONE. [Concomitant]
     Active Substance: PREDNISONE
     Indication: ASTHMA
     Dates: start: 20120126, end: 20120220
  3. BUDESONIDE W/FORMOTEROL [Concomitant]
     Active Substance: BUDESONIDE\FORMOTEROL
     Indication: ASTHMA
     Dosage: 200/6 MCG
     Dates: start: 20120208
  4. SALBUTAMOL [Concomitant]
     Active Substance: ALBUTEROL
     Dates: start: 20151108, end: 20151109
  5. AMOXICILLINE [Concomitant]
     Active Substance: AMOXICILLIN
     Indication: NASOPHARYNGITIS
     Dates: start: 20120125, end: 20120204
  6. IPRATROPIUM [Concomitant]
     Active Substance: IPRATROPIUM
     Indication: ASTHMA
     Dates: start: 20131024, end: 20140429
  7. HUMIRA [Suspect]
     Active Substance: ADALIMUMAB
     Indication: PSORIASIS
     Route: 058
     Dates: start: 20090325, end: 20090325
  8. AMOXICILLIN W/CLAVULANIC ACID [Concomitant]
     Active Substance: AMOXICILLIN\CLAVULANIC ACID
     Indication: EAR INFECTION
     Dates: start: 20090317, end: 20090324
  9. PREDNISONE. [Concomitant]
     Active Substance: PREDNISONE
     Dates: start: 20151108, end: 20151111
  10. IPRATROPIUM [Concomitant]
     Active Substance: IPRATROPIUM
     Dates: start: 20151108, end: 20151109
  11. PERINDOPRIL [Concomitant]
     Active Substance: PERINDOPRIL
     Indication: HYPERTENSION
     Dates: start: 20090620
  12. PREDNISONE. [Concomitant]
     Active Substance: PREDNISONE
     Dates: start: 20151112, end: 20151119
  13. LIDOCAIN / ADRENALINE [Concomitant]
     Indication: CYST
     Dates: start: 20150806, end: 20150807
  14. AMOXICILLIN W/CLAVULANIC ACID [Concomitant]
     Active Substance: AMOXICILLIN\CLAVULANIC ACID
     Indication: ECZEMA
     Dates: start: 20090817, end: 20090824
  15. CLINDAMYCIN. [Concomitant]
     Active Substance: CLINDAMYCIN
     Indication: ERYSIPELAS
     Dates: start: 20090329, end: 20090407
  16. IPRATROPIUM [Concomitant]
     Active Substance: IPRATROPIUM
     Indication: ASTHMA
     Dates: start: 20120208, end: 20120822
  17. DILTIAZEM. [Concomitant]
     Active Substance: DILTIAZEM
     Indication: ARRHYTHMIA
     Dates: start: 201009
  18. METOPROLOL. [Concomitant]
     Active Substance: METOPROLOL
     Indication: HYPERTENSION
     Dates: start: 20090620, end: 20100921
  19. ZITHROMAX [Concomitant]
     Active Substance: AZITHROMYCIN DIHYDRATE
     Indication: ASTHMA PROPHYLAXIS
     Dates: start: 20161120
  20. HUMIRA [Suspect]
     Active Substance: ADALIMUMAB
     Route: 058
     Dates: end: 20161227
  21. ASPIRIN. [Concomitant]
     Active Substance: ASPIRIN
     Indication: ARRHYTHMIA
     Dates: start: 20090620
  22. PREDNISONE. [Concomitant]
     Active Substance: PREDNISONE
     Dates: start: 20161002, end: 20161012
  23. SALBUTAMOL [Concomitant]
     Active Substance: ALBUTEROL
     Indication: ASTHMA
     Dosage: 4-6 TIMES A DAY
     Dates: start: 20120208
  24. PREDNISONE. [Concomitant]
     Active Substance: PREDNISONE
     Dates: start: 20131024, end: 20131101
  25. MONTELUKAST [Concomitant]
     Active Substance: MONTELUKAST SODIUM
     Indication: ASTHMA
     Dates: start: 20161002

REACTIONS (4)
  - Dyspnoea [Recovered/Resolved]
  - Rhinitis [Recovered/Resolved]
  - Pyrexia [Recovered/Resolved]
  - Asthma [Recovered/Resolved]

NARRATIVE: CASE EVENT DATE: 20170215
